FAERS Safety Report 9521206 (Version 1)
Quarter: 2013Q1

REPORT INFORMATION
  Report Type: Spontaneous
  Country: US (occurrence: None)
  Receive Date: 20130305
  Receipt Date: 20130305
  Transmission Date: 20140127
  Serious: Yes (Other)
  Sender: FDA-Public Use
  Company Number: 163-21880-12080153

PATIENT
  Age: 78 Year
  Sex: Male

DRUGS (14)
  1. REVLIMID [Suspect]
     Indication: PLASMA CELL MYELOMA
     Dosage: 15 MG, 21 IN 21 D, PO
     Route: 048
     Dates: start: 20100127
  2. DEXAMETHASONE(DEXAMETHAZONE) [Concomitant]
  3. GABAPENTIN(GABAPENTIN) [Concomitant]
  4. PENICILLIN(BENZYL [Concomitant]
  5. DEXAMETHASONE(DEXAMETHASONE) [Concomitant]
  6. GABAPENTIN(GABAPENTIN) [Concomitant]
  7. PENCILLIN(BENZYLPENICILLIN SODIUM) [Concomitant]
  8. LORAZEPAM(LORAZEPAM) [Concomitant]
  9. CHLORHEXIDE RINSE(CHLORHEXIDINE) [Concomitant]
  10. WARFARIN(WARFARIN) [Concomitant]
  11. HYDROCODONE/ACETAMINOPHEN(REMEDINE) [Concomitant]
  12. METRONIDAZOLE(METRONIDAZOLE) [Concomitant]
  13. AUGMENTIN(CLAVULIN) [Concomitant]
  14. HYDROCORTISONE(HYDROCORTISONE) [Concomitant]

REACTIONS (1)
  - Dyspnoea [None]
